FAERS Safety Report 10362424 (Version 1)
Quarter: 2014Q3

REPORT INFORMATION
  Report Type: Spontaneous
  Country: US (occurrence: US)
  Receive Date: 20140805
  Receipt Date: 20140805
  Transmission Date: 20150326
  Serious: No
  Sender: FDA-Public Use
  Company Number: US-JNJFOC-20140715926

PATIENT
  Sex: Male
  Weight: 72.58 kg

DRUGS (2)
  1. INVEGA [Suspect]
     Active Substance: PALIPERIDONE
     Indication: UNEVALUABLE EVENT
     Route: 048
     Dates: start: 2014, end: 2014
  2. INVEGA SUSTENNA [Suspect]
     Active Substance: PALIPERIDONE PALMITATE
     Indication: UNEVALUABLE EVENT
     Route: 030
     Dates: start: 2014

REACTIONS (1)
  - Drug ineffective [Unknown]
